FAERS Safety Report 8310812 (Version 5)
Quarter: 2013Q1

REPORT INFORMATION
  Report Type: Spontaneous
  Country: US (occurrence: US)
  Receive Date: 20111226
  Receipt Date: 20130318
  Transmission Date: 20140127
  Serious: Yes (Hospitalization)
  Sender: FDA-Public Use
  Company Number: US-ELI_LILLY_AND_COMPANY-US201112004307

PATIENT
  Age: 85 Year
  Sex: Female
  Weight: 44 kg

DRUGS (6)
  1. FORTEO [Suspect]
     Indication: OSTEOPOROSIS
     Dosage: 20 UG, QD
     Route: 058
     Dates: start: 20111004
  2. FORTEO [Suspect]
     Dosage: 20 UG, QD
     Route: 058
  3. MELOXICAM [Concomitant]
     Indication: ARTHRITIS
  4. SYNTHROID [Concomitant]
     Indication: THYROID DISORDER
  5. VITAMINS NOS [Concomitant]
  6. PROTONIX [Concomitant]
     Indication: DYSPEPSIA

REACTIONS (9)
  - Pelvic fracture [Recovering/Resolving]
  - Upper limb fracture [Recovering/Resolving]
  - Fall [Recovering/Resolving]
  - Decreased activity [Unknown]
  - Depression [Unknown]
  - Depressed mood [Unknown]
  - Crying [Unknown]
  - Fall [Unknown]
  - Laceration [Unknown]
